FAERS Safety Report 9458285 (Version 1)
Quarter: 2013Q3

REPORT INFORMATION
  Report Type: Report from Study
  Country: DE (occurrence: DE)
  Receive Date: 20130814
  Receipt Date: 20130814
  Transmission Date: 20140515
  Serious: Yes (Other)
  Sender: FDA-Public Use
  Company Number: DE-SANOFI-AVENTIS-2013SA080248

PATIENT
  Age: 58 Year
  Sex: Female
  Weight: 78 kg

DRUGS (5)
  1. MULTAQ [Suspect]
     Indication: ATRIAL FIBRILLATION
     Route: 048
     Dates: start: 20120713, end: 20130621
  2. BETA BLOCKING AGENTS [Concomitant]
     Dates: start: 201206
  3. VIT K ANTAGONISTS [Concomitant]
     Dates: start: 20120625
  4. LORZAAR [Concomitant]
  5. GLIBENCLAMIDE [Concomitant]

REACTIONS (2)
  - Atrial fibrillation [Unknown]
  - Ill-defined disorder [Unknown]
